FAERS Safety Report 16191480 (Version 1)
Quarter: 2019Q2

REPORT INFORMATION
  Report Type: Spontaneous
  Country: NL (occurrence: NL)
  Receive Date: 20190412
  Receipt Date: 20190412
  Transmission Date: 20190711
  Serious: Yes (Hospitalization)
  Sender: FDA-Public Use
  Company Number: NL-VIFOR (INTERNATIONAL) INC.-VIT-2019-03362

PATIENT
  Age: 78 Year
  Sex: Male

DRUGS (9)
  1. GLIMEPIRIDE. [Concomitant]
     Active Substance: GLIMEPIRIDE
  2. COLECALCIFEROL [Concomitant]
     Active Substance: CHOLECALCIFEROL
  3. MIRCERA [Suspect]
     Active Substance: METHOXY POLYETHYLENE GLYCOL-EPOETIN BETA
     Indication: NEPHROGENIC ANAEMIA
     Dates: start: 20181128, end: 20190313
  4. CARVEDILOL. [Concomitant]
     Active Substance: CARVEDILOL
  5. TOPICORTE [Concomitant]
     Active Substance: DESOXIMETASONE
  6. NITROGLYCERINE [Concomitant]
     Active Substance: NITROGLYCERIN
  7. BUMETANIDE. [Concomitant]
     Active Substance: BUMETANIDE
  8. FENPROCOUMON [Concomitant]
     Active Substance: PHENPROCOUMON
  9. ALFACALCIDOL [Concomitant]
     Active Substance: ALFACALCIDOL

REACTIONS (2)
  - Epistaxis [Unknown]
  - Thrombocytopenia [Unknown]

NARRATIVE: CASE EVENT DATE: 20190222
